FAERS Safety Report 16530201 (Version 1)
Quarter: 2019Q3

REPORT INFORMATION
  Report Type: Spontaneous
  Country: US (occurrence: US)
  Receive Date: 20190704
  Receipt Date: 20190704
  Transmission Date: 20191004
  Serious: Yes (Other)
  Sender: FDA-Public Use
  Company Number: US-CIPLA LTD.-2019US04734

PATIENT

DRUGS (4)
  1. METOPROLOL. [Suspect]
     Active Substance: METOPROLOL
     Indication: SINUS NODE DYSFUNCTION
     Dosage: UNK, LOW DOSES
     Route: 065
  2. IVABRADINE [Suspect]
     Active Substance: IVABRADINE
     Indication: SINUS NODE DYSFUNCTION
     Dosage: UNK, LOW DOSES
     Route: 065
  3. IVABRADINE [Suspect]
     Active Substance: IVABRADINE
     Dosage: UNK, HIGHER DOSES
     Route: 065
  4. METOPROLOL. [Suspect]
     Active Substance: METOPROLOL
     Dosage: UNK, HIGHER DOSES
     Route: 065

REACTIONS (3)
  - Fatigue [Recovering/Resolving]
  - Treatment failure [Unknown]
  - Dyspnoea [Recovering/Resolving]
